FAERS Safety Report 7358081 (Version 2)
Quarter: 2014Q3

REPORT INFORMATION
  Report Type: Spontaneous
  Country: US (occurrence: None)
  Receive Date: 20100401
  Receipt Date: 20140908
  Transmission Date: 20150326
  Serious: Yes (Hospitalization, Other)
  Sender: FDA-Public Use
  Company Number: 2010S1001754

PATIENT
  Age: 67 Year
  Sex: Female
  Weight: 134 kg

DRUGS (7)
  1. CALCIUM [Concomitant]
     Active Substance: CALCIUM
  2. LASIX [Concomitant]
     Active Substance: FUROSEMIDE
  3. ALLEGRA (FEXOFENADINE HYDROCHLORIDE) [Concomitant]
  4. PHOSPHO-SODA [Suspect]
     Active Substance: SODIUM PHOSPHATE, DIBASIC\SODIUM PHOSPHATE, MONOBASIC
     Indication: COLONOSCOPY
     Route: 048
     Dates: start: 20040316, end: 20040316
  5. MICARDIS [Concomitant]
     Active Substance: TELMISARTAN
  6. ASPIRIN (ACETYLSALICYLIC ACID) [Concomitant]
     Active Substance: ASPIRIN
  7. GLUCOVANCE (METFORMIN HYDROCHLORIDE, GLIBENCLAMIDE) [Concomitant]

REACTIONS (12)
  - Renal disorder [None]
  - Pruritus [None]
  - Nausea [None]
  - Renal failure acute [None]
  - Blood parathyroid hormone increased [None]
  - Dizziness [None]
  - Orthostatic hypotension [None]
  - Renal failure chronic [None]
  - Nephrogenic anaemia [None]
  - Hypovolaemia [None]
  - Renal tubular necrosis [None]
  - Acute phosphate nephropathy [None]

NARRATIVE: CASE EVENT DATE: 20040428
